FAERS Safety Report 15587085 (Version 2)
Quarter: 2018Q4

REPORT INFORMATION
  Report Type: Spontaneous
  Country: JP (occurrence: JP)
  Receive Date: 20181105
  Receipt Date: 20181115
  Transmission Date: 20190205
  Serious: Yes (Hospitalization, Other)
  Sender: FDA-Public Use
  Company Number: JP-ELI_LILLY_AND_COMPANY-JP201810011960AA

PATIENT
  Age: 68 Year
  Sex: Male

DRUGS (1)
  1. HUMATROPE [Suspect]
     Active Substance: SOMATROPIN
     Indication: GROWTH HORMONE DEFICIENCY
     Route: 058

REACTIONS (5)
  - Non-secretory adenoma of pituitary [Unknown]
  - Normal pressure hydrocephalus [Recovered/Resolved]
  - Intracranial tumour haemorrhage [Unknown]
  - Subarachnoid haemorrhage [Unknown]
  - Intracranial aneurysm [Unknown]
